FAERS Safety Report 5041095-4 (Version None)
Quarter: 2006Q3

REPORT INFORMATION
  Report Type: 
  Country: None (occurrence: None)
  Receive Date: 20060703
  Receipt Date: 20060621
  Transmission Date: 20061208
  Serious: Yes (Hospitalization)
  Sender: FDA-Public Use
  Company Number: JP-ROCHE-452876

PATIENT
  Age: 66 Year
  Sex: Male

DRUGS (2)
  1. INTERFERON ALFA [Suspect]
     Route: 065
     Dates: start: 19940516, end: 19940614
  2. INTERFERON ALFA [Suspect]
     Dosage: DISCONTINUED DUE TO BONE MARROW SUPPRESSION.
     Route: 065
     Dates: start: 19930727, end: 19940502

REACTIONS (2)
  - ANTI-INSULIN ANTIBODY POSITIVE [None]
  - DIABETIC KETOACIDOSIS [None]
